FAERS Safety Report 24626131 (Version 1)
Quarter: 2024Q4

REPORT INFORMATION
  Report Type: Spontaneous
  Country: DE (occurrence: DE)
  Receive Date: 20241115
  Receipt Date: 20241115
  Transmission Date: 20250115
  Serious: Yes (Hospitalization, Other)
  Sender: BRISTOL-MYERS SQUIBB COMPANY
  Company Number: DE-BRISTOL-MYERS SQUIBB COMPANY-2024-175530

PATIENT
  Age: 48 Year
  Sex: Male

DRUGS (2)
  1. NIVOLUMAB [Suspect]
     Active Substance: NIVOLUMAB
     Indication: Metastatic malignant melanoma
     Dosage: DOSE AND FREQUENCY: UNAVAILABLE
     Dates: start: 202210
  2. IPILIMUMAB [Suspect]
     Active Substance: IPILIMUMAB
     Indication: Metastatic malignant melanoma
     Dosage: DOSE AND FREQUENCY: UNAVAILABLE
     Dates: start: 202210

REACTIONS (7)
  - Immune-mediated lung disease [Unknown]
  - Immune-mediated myositis [Unknown]
  - Immune-mediated hypophysitis [Unknown]
  - Vitiligo [Unknown]
  - Immune-mediated arthritis [Unknown]
  - Erysipelas [Unknown]
  - Malignant neoplasm progression [Unknown]

NARRATIVE: CASE EVENT DATE: 20230101
